FAERS Safety Report 13617761 (Version 1)
Quarter: 2017Q2

REPORT INFORMATION
  Report Type: Spontaneous
  Country: TR (occurrence: TR)
  Receive Date: 20170606
  Receipt Date: 20170606
  Transmission Date: 20170830
  Serious: Yes (Life-Threatening, Hospitalization, Other)
  Sender: FDA-Public Use
  Company Number: TR-ALKEM LABORATORIES LIMITED-TR-ALKEM-2017-00288

PATIENT
  Age: 18 Year
  Sex: Female
  Weight: 61 kg

DRUGS (1)
  1. AMLODIPINE BESYLATE. [Suspect]
     Active Substance: AMLODIPINE BESYLATE
     Indication: SUICIDE ATTEMPT
     Dosage: 400 MG ONCE TOTAL
     Route: 048

REACTIONS (7)
  - Hypoxia [Recovered/Resolved]
  - Cardiac disorder [Recovered/Resolved]
  - Intentional overdose [Recovered/Resolved]
  - Hypotension [Recovered/Resolved]
  - Toxicity to various agents [Recovered/Resolved]
  - Pleural effusion [Recovered/Resolved]
  - Bradycardia [Recovered/Resolved]
